FAERS Safety Report 5338489-6 (Version None)
Quarter: 2007Q2

REPORT INFORMATION
  Report Type: 
  Country: None (occurrence: None)
  Receive Date: 20070530
  Receipt Date: 20070515
  Transmission Date: 20071010
  Serious: Yes (Other)
  Sender: FDA-Public Use
  Company Number: AU-ELI_LILLY_AND_COMPANY-AU200705004965

PATIENT
  Age: 9 Year
  Sex: Male

DRUGS (1)
  1. STRATTERA [Suspect]
     Indication: ABNORMAL BEHAVIOUR
     Dates: end: 20070101

REACTIONS (6)
  - AGGRESSION [None]
  - ANGER [None]
  - DEPRESSION [None]
  - INTENTIONAL SELF-INJURY [None]
  - MOOD SWINGS [None]
  - SUICIDAL IDEATION [None]
